FAERS Safety Report 20399029 (Version 2)
Quarter: 2022Q1

REPORT INFORMATION
  Report Type: Spontaneous
  Country: US (occurrence: US)
  Receive Date: 20220131
  Receipt Date: 20220201
  Transmission Date: 20220423
  Serious: No
  Sender: FDA-Public Use
  Company Number: US-ABBVIE-21K-163-3771301-00

PATIENT
  Age: 69 Year
  Sex: Female
  Weight: 73.548 kg

DRUGS (5)
  1. HUMIRA [Suspect]
     Active Substance: ADALIMUMAB
     Indication: Rheumatoid arthritis
     Route: 058
     Dates: start: 2018
  2. METHOTREXATE [Concomitant]
     Active Substance: METHOTREXATE
     Indication: Rheumatoid arthritis
  3. HYDROCHLOROTHIAZIDE [Concomitant]
     Active Substance: HYDROCHLOROTHIAZIDE
     Indication: Hypertension
  4. COVID-19 VACCINE [Concomitant]
     Indication: COVID-19 immunisation
     Dosage: MODERNA. FIRST DOSE.
     Route: 030
     Dates: start: 20210112, end: 20210112
  5. COVID-19 VACCINE [Concomitant]
     Dosage: MODERNA. SECOND DOSE.
     Route: 030
     Dates: start: 20210209, end: 20210209

REACTIONS (6)
  - Needle issue [Unknown]
  - Incorrect dose administered [Unknown]
  - Incorrect dose administered [Recovered/Resolved]
  - Needle issue [Recovered/Resolved]
  - Injection site haemorrhage [Recovered/Resolved]
  - Injection site haemorrhage [Recovered/Resolved]

NARRATIVE: CASE EVENT DATE: 20210105
